FAERS Safety Report 8502874-1 (Version None)
Quarter: 2012Q3

REPORT INFORMATION
  Report Type: 
  Country: None (occurrence: None)
  Receive Date: 20120711
  Receipt Date: 20120702
  Transmission Date: 20120928
  Serious: Yes (Other)
  Sender: FDA-Public Use
  Company Number: DE-ASTRAZENECA-2012SE45237

PATIENT
  Age: 28814 Day
  Sex: Female
  Weight: 73 kg

DRUGS (5)
  1. METOPROLOL SUCCINATE [Concomitant]
     Indication: HYPERTENSION
     Route: 048
     Dates: start: 20020101
  2. ASPIRIN [Concomitant]
     Indication: PLATELET AGGREGATION INHIBITION
     Route: 048
     Dates: start: 20120506
  3. BRILINTA [Suspect]
     Indication: PLATELET AGGREGATION INHIBITION
     Route: 048
     Dates: start: 20120506
  4. DIOVAN HCT [Concomitant]
     Indication: HYPERTENSION
     Dosage: 80/12.5 1 DOSAGE FORM DAILY
     Route: 048
     Dates: start: 20080101
  5. EZETIMIBE [Concomitant]
     Indication: HYPERLIPIDAEMIA
     Dosage: 10/40 1 DOSAGE FORM DAILY
     Route: 048
     Dates: start: 20120101

REACTIONS (1)
  - THROMBOCYTOPENIA [None]
